FAERS Safety Report 26130836 (Version 1)
Quarter: 2025Q4

REPORT INFORMATION
  Report Type: Spontaneous
  Country: US (occurrence: None)
  Receive Date: 20251208
  Receipt Date: 20251208
  Transmission Date: 20260118
  Serious: Yes (Hospitalization)
  Sender: FDA-CTU
  Company Number: None

PATIENT
  Age: 72 Year
  Sex: Male

DRUGS (1)
  1. EMPAGLIFLOZIN [Suspect]
     Active Substance: EMPAGLIFLOZIN
     Indication: Diabetes mellitus
     Dosage: 12.5 MG EVERY DAY PO
     Route: 048
     Dates: start: 20250205, end: 20250917

REACTIONS (5)
  - Diabetic ketoacidosis [None]
  - Abdominal pain [None]
  - Headache [None]
  - Dyspnoea [None]
  - Eating disorder [None]

NARRATIVE: CASE EVENT DATE: 20250917
